FAERS Safety Report 14677862 (Version 2)
Quarter: 2018Q3

REPORT INFORMATION
  Report Type: Report from Study
  Country: US (occurrence: US)
  Receive Date: 20180326
  Receipt Date: 20180719
  Transmission Date: 20181010
  Serious: Yes (Hospitalization)
  Sender: FDA-Public Use
  Company Number: US-ROCHE-1363157

PATIENT
  Age: 7 Year
  Sex: Female
  Weight: 26.4 kg

DRUGS (12)
  1. PROGRAF [Concomitant]
     Active Substance: TACROLIMUS\TACROLIMUS ANHYDROUS
     Route: 048
  2. NUTROPIN AQ [Suspect]
     Active Substance: SOMATROPIN
     Indication: CHRONIC KIDNEY DISEASE
     Route: 058
  3. POLY?VI?SOL [Concomitant]
     Active Substance: VITAMINS
     Dosage: EVERY EVENING
     Route: 048
  4. CELLCEPT [Suspect]
     Active Substance: MYCOPHENOLATE MOFETIL\MYCOPHENOLATE MOFETIL HYDROCHLORIDE
     Indication: TRANSPLANT
     Route: 048
  5. CELLCEPT [Suspect]
     Active Substance: MYCOPHENOLATE MOFETIL\MYCOPHENOLATE MOFETIL HYDROCHLORIDE
     Indication: TRANSPLANT
     Route: 048
  6. CELLCEPT [Suspect]
     Active Substance: MYCOPHENOLATE MOFETIL\MYCOPHENOLATE MOFETIL HYDROCHLORIDE
     Route: 048
  7. RITUXIMAB. [Suspect]
     Active Substance: RITUXIMAB
     Indication: PRODUCT USED FOR UNKNOWN INDICATION
     Route: 065
  8. NUTROPIN AQ [Suspect]
     Active Substance: SOMATROPIN
     Route: 058
  9. ORAPRED [Concomitant]
     Active Substance: PREDNISOLONE SODIUM PHOSPHATE
     Route: 048
  10. DELTASONE [Concomitant]
     Active Substance: PREDNISONE
     Dosage: 3 TABLET
     Route: 048
  11. VITAMIN D3 [Concomitant]
     Active Substance: CHOLECALCIFEROL
     Indication: CHRONIC KIDNEY DISEASE
     Route: 048
  12. FERROUS SULFATE. [Concomitant]
     Active Substance: FERROUS SULFATE
     Route: 048

REACTIONS (17)
  - Blood urea increased [Unknown]
  - Viral upper respiratory tract infection [Unknown]
  - Nasopharyngitis [Unknown]
  - Blood sodium decreased [Unknown]
  - Carbon dioxide decreased [Unknown]
  - Renal bruit [Unknown]
  - Tooth discolouration [Unknown]
  - Oropharyngeal pain [Unknown]
  - Blood potassium decreased [Unknown]
  - Diarrhoea [Unknown]
  - Immune tolerance induction [Unknown]
  - Viraemia [Recovered/Resolved]
  - Urosepsis [Unknown]
  - Red blood cell count increased [Unknown]
  - Blood creatinine increased [Unknown]
  - Rhinorrhoea [Unknown]
  - Constipation [Unknown]

NARRATIVE: CASE EVENT DATE: 201603
